FAERS Safety Report 8262083-0 (Version None)
Quarter: 2012Q2

REPORT INFORMATION
  Report Type: 
  Country: None (occurrence: None)
  Receive Date: 20120405
  Receipt Date: 20120330
  Transmission Date: 20120825
  Serious: Yes (Hospitalization)
  Sender: FDA-Public Use
  Company Number: PHHY2012FR027951

PATIENT
  Sex: Male

DRUGS (11)
  1. ATROVENT [Concomitant]
  2. SPIRIVA [Concomitant]
  3. PLAVIX [Concomitant]
  4. LERCANIDIPINE [Suspect]
     Route: 048
     Dates: end: 20120216
  5. MEDIATENSYL [Concomitant]
     Dosage: 1 DF, THREE TIMES DAILY
     Route: 048
  6. ALBUTEROL [Concomitant]
  7. RASILEZ [Suspect]
     Dosage: 1 DF, DAILY
     Route: 048
     Dates: end: 20120215
  8. FLUTICASONE PROPIONATE/SALMETEROL [Concomitant]
  9. IRBESARTAN [Suspect]
     Dosage: 1 DF, UNK
     Route: 048
     Dates: end: 20120216
  10. LASIX [Suspect]
     Dosage: 1 DF, UNK
     Route: 048
     Dates: end: 20120216
  11. CRESTOR [Concomitant]

REACTIONS (9)
  - TRANSIENT ISCHAEMIC ATTACK [None]
  - DYSARTHRIA [None]
  - VIITH NERVE PARALYSIS [None]
  - RESPIRATORY DISTRESS [None]
  - COUGH [None]
  - CEREBROVASCULAR STENOSIS [None]
  - LUNG DISORDER [None]
  - DYSPNOEA [None]
  - PYREXIA [None]
